FAERS Safety Report 23207883 (Version 1)
Quarter: 2023Q4

REPORT INFORMATION
  Report Type: Spontaneous
  Country: US (occurrence: US)
  Receive Date: 20231121
  Receipt Date: 20231121
  Transmission Date: 20240109
  Serious: Yes (Hospitalization, Other)
  Sender: FDA-Public Use
  Company Number: US-SA-SAC20231116000069

PATIENT
  Age: 49 Year
  Sex: Male

DRUGS (3)
  1. LANTUS SOLOSTAR [Suspect]
     Active Substance: INSULIN GLARGINE
     Dosage: UNK
     Route: 065
  2. FARXIGA [Concomitant]
     Active Substance: DAPAGLIFLOZIN PROPANEDIOL
     Indication: Immunisation
     Dosage: UNK
  3. INVOKANA [Concomitant]
     Active Substance: CANAGLIFLOZIN
     Dosage: UNK

REACTIONS (5)
  - Necrotising fasciitis [Unknown]
  - Leg amputation [Unknown]
  - Bacterial sepsis [Unknown]
  - Kidney infection [Unknown]
  - Urinary tract infection [Unknown]

NARRATIVE: CASE EVENT DATE: 20230101
